FAERS Safety Report 8338834-3 (Version None)
Quarter: 2012Q2

REPORT INFORMATION
  Report Type: 
  Country: None (occurrence: None)
  Receive Date: 20120504
  Receipt Date: 20120426
  Transmission Date: 20120825
  Serious: Yes (Hospitalization)
  Sender: FDA-Public Use
  Company Number: FR-MERCK-1204USA04508

PATIENT
  Age: 81 Year
  Sex: Male

DRUGS (2)
  1. NOROXIN [Suspect]
     Indication: PROSTATIC DISORDER
     Route: 048
     Dates: start: 20111124, end: 20111130
  2. BETASERC [Suspect]
     Route: 048

REACTIONS (2)
  - OESOPHAGITIS [None]
  - MELAENA [None]
